FAERS Safety Report 4612820-9 (Version None)
Quarter: 2005Q1

REPORT INFORMATION
  Report Type: 
  Country: None (occurrence: None)
  Receive Date: 20050318
  Receipt Date: 20050307
  Transmission Date: 20050727
  Serious: Yes (Life-Threatening)
  Sender: FDA-Public Use
  Company Number: BE-JNJFOC-20041008055

PATIENT
  Sex: Female
  Weight: 16 kg

DRUGS (1)
  1. TOPAMAX [Suspect]
     Indication: DRUG USE FOR UNKNOWN INDICATION
     Route: 049

REACTIONS (5)
  - ANHIDROSIS [None]
  - CONVULSION [None]
  - HYPERTHERMIA [None]
  - MALAISE [None]
  - VASODILATATION [None]
